FAERS Safety Report 8486158-6 (Version None)
Quarter: 2012Q3

REPORT INFORMATION
  Report Type: 
  Country: None (occurrence: None)
  Receive Date: 20120703
  Receipt Date: 20120627
  Transmission Date: 20120928
  Serious: Yes (Other)
  Sender: FDA-Public Use
  Company Number: US-PFIZER INC-2012154991

PATIENT
  Sex: Male
  Weight: 56.9 kg

DRUGS (5)
  1. TESTOSTERONE CIPIONATE [Concomitant]
     Indication: HYPOGONADISM
     Dosage: UNK
     Route: 030
     Dates: start: 20050601
  2. CORTEF [Concomitant]
     Indication: ADRENAL INSUFFICIENCY
     Dosage: UNK
     Route: 048
     Dates: start: 20050601
  3. DESMOPRESSIN [Concomitant]
     Indication: DIABETES INSIPIDUS
     Dosage: UNK
     Route: 048
     Dates: start: 20050601
  4. GENOTROPIN [Suspect]
     Indication: HYPOPITUITARISM
     Dosage: 2.2 MG, 1X/DAY
     Route: 058
     Dates: start: 20061017, end: 20110923
  5. LEVOTHYROXINE [Concomitant]
     Indication: HYPOTHYROIDISM
     Dosage: UNK
     Route: 048
     Dates: start: 20050601

REACTIONS (2)
  - CRANIOPHARYNGIOMA [None]
  - NEOPLASM RECURRENCE [None]
